FAERS Safety Report 12207772 (Version 1)
Quarter: 2016Q1

REPORT INFORMATION
  Report Type: Spontaneous
  Country: CH (occurrence: DE)
  Receive Date: 20160324
  Receipt Date: 20160324
  Transmission Date: 20160526
  Serious: Yes (Other)
  Sender: FDA-Public Use
  Company Number: CH-LPDUSPRD-20160250

PATIENT
  Age: 38 Year
  Sex: Female
  Weight: 96 kg

DRUGS (1)
  1. FERINJECT [Suspect]
     Active Substance: FERRIC CARBOXYMALTOSE
     Dosage: 500 MG, 2 TOTAL
     Route: 041
     Dates: start: 201510, end: 201601

REACTIONS (4)
  - Pyrexia [Unknown]
  - Hypotension [Unknown]
  - Chills [Unknown]
  - Fatigue [Unknown]

NARRATIVE: CASE EVENT DATE: 201601
